FAERS Safety Report 9853481 (Version 1)
Quarter: 2014Q1

REPORT INFORMATION
  Report Type: Report from Study
  Country: IE (occurrence: IE)
  Receive Date: 20140129
  Receipt Date: 20140129
  Transmission Date: 20141002
  Serious: Yes (Hospitalization)
  Sender: FDA-Public Use
  Company Number: IE-GLAXOSMITHKLINE-B0893280A

PATIENT
  Age: 69 Year
  Sex: Female

DRUGS (4)
  1. DABRAFENIB [Suspect]
     Indication: MALIGNANT MELANOMA
     Dosage: 150MG TWICE PER DAY
     Dates: start: 20130502, end: 20130606
  2. TRAMETINIB [Suspect]
     Indication: MALIGNANT MELANOMA
     Dosage: 2MG PER DAY
     Dates: start: 20130502, end: 20130606
  3. CIPROFLOXACIN [Concomitant]
     Indication: DRUG HYPERSENSITIVITY
  4. FLUCONAZOLE [Concomitant]
     Indication: CANDIDA INFECTION

REACTIONS (1)
  - Lower respiratory tract infection [Recovered/Resolved]
